FAERS Safety Report 10279770 (Version 4)
Quarter: 2016Q4

REPORT INFORMATION
  Report Type: Report from Study
  Country: US (occurrence: US)
  Receive Date: 20140707
  Receipt Date: 20161208
  Transmission Date: 20170206
  Serious: Yes (Hospitalization, Other)
  Sender: FDA-Public Use
  Company Number: US-SA-2014SA087721

PATIENT
  Age: 84 Year
  Sex: Male

DRUGS (3)
  1. ANTIBIOTICS [Concomitant]
     Active Substance: UNSPECIFIED INGREDIENT
  2. LUMIZYME [Suspect]
     Active Substance: ALGLUCOSIDASE ALFA
     Indication: GLYCOGEN STORAGE DISEASE TYPE II
     Dosage: DOSE: 20.00
     Route: 042
     Dates: start: 20061018
  3. LUMIZYME [Suspect]
     Active Substance: ALGLUCOSIDASE ALFA
     Indication: GLYCOGEN STORAGE DISEASE TYPE II
     Dosage: DOSE: 20.00
     Route: 042
     Dates: start: 20061018

REACTIONS (6)
  - Dehydration [Unknown]
  - Colitis [Unknown]
  - Diarrhoea [Unknown]
  - Asthenia [Unknown]
  - Abdominal pain [Unknown]
  - Clostridium difficile infection [Not Recovered/Not Resolved]
